FAERS Safety Report 10753274 (Version 1)
Quarter: 2015Q1

REPORT INFORMATION
  Report Type: Spontaneous
  Country: US (occurrence: US)
  Receive Date: 20150130
  Receipt Date: 20150130
  Transmission Date: 20150721
  Serious: No
  Sender: FDA-Public Use
  Company Number: US-009507513-1501USA012324

PATIENT
  Age: 49 Year
  Sex: Male

DRUGS (1)
  1. PROPECIA [Suspect]
     Active Substance: FINASTERIDE
     Indication: ALOPECIA
     Dosage: 1 MG, TID
     Route: 048
     Dates: start: 201411

REACTIONS (5)
  - Overdose [Unknown]
  - Crying [Unknown]
  - Hair growth abnormal [Unknown]
  - Breast enlargement [Unknown]
  - Weight increased [Unknown]

NARRATIVE: CASE EVENT DATE: 201411
